FAERS Safety Report 14315400 (Version 3)
Quarter: 2018Q3

REPORT INFORMATION
  Report Type: Report from Study
  Country: CO (occurrence: CO)
  Receive Date: 20171221
  Receipt Date: 20180810
  Transmission Date: 20181010
  Serious: Yes (Hospitalization, Other)
  Sender: FDA-Public Use
  Company Number: CO-ACTELION-A-NJ2017-164621

PATIENT
  Age: 44 Year
  Sex: Female

DRUGS (6)
  1. SILDENAFIL. [Suspect]
     Active Substance: SILDENAFIL
     Indication: PULMONARY ARTERIAL HYPERTENSION
     Dosage: UNK
     Route: 048
  2. OPSUMIT [Suspect]
     Active Substance: MACITENTAN
     Indication: PULMONARY ARTERIAL HYPERTENSION
     Dosage: 10 MG, QD
     Route: 048
     Dates: start: 20170205
  3. PARACETAMOL [Suspect]
     Active Substance: ACETAMINOPHEN
     Indication: PRODUCT USED FOR UNKNOWN INDICATION
     Dosage: 500 MG, QID
     Route: 065
  4. VENTAVIS [Suspect]
     Active Substance: ILOPROST
     Indication: PULMONARY ARTERIAL HYPERTENSION
     Dosage: 6 DF, QD
     Route: 055
     Dates: start: 20170511
  5. AMLODIPINE [Concomitant]
     Active Substance: AMLODIPINE BESYLATE
  6. SILDENAFIL. [Suspect]
     Active Substance: SILDENAFIL
     Dosage: 0.5 DF TID
     Route: 065
     Dates: start: 201807

REACTIONS (16)
  - Infarction [Recovering/Resolving]
  - Headache [Not Recovered/Not Resolved]
  - Condition aggravated [Not Recovered/Not Resolved]
  - Pulmonary oedema [Unknown]
  - Inflammation [Unknown]
  - Hyperhidrosis [Not Recovered/Not Resolved]
  - Chest pain [Unknown]
  - Syncope [Unknown]
  - Choking [Unknown]
  - Burning sensation [Not Recovered/Not Resolved]
  - Fluid retention [Unknown]
  - Angina unstable [Unknown]
  - Amnesia [Unknown]
  - Pulmonary hypertension [Not Recovered/Not Resolved]
  - Drug dose omission [Unknown]
  - Pain of skin [Unknown]

NARRATIVE: CASE EVENT DATE: 201712
